FAERS Safety Report 4326624-8 (Version None)
Quarter: 2004Q1

REPORT INFORMATION
  Report Type: 
  Country: None (occurrence: None)
  Receive Date: 20040325
  Receipt Date: 20030815
  Transmission Date: 20041129
  Serious: No
  Sender: FDA-Public Use
  Company Number: US045072

PATIENT
  Age: 54 Year
  Sex: Female

DRUGS (2)
  1. NEULASTA [Suspect]
     Indication: CHEMOTHERAPY
     Dates: start: 20030701
  2. PACLITAXEL [Concomitant]

REACTIONS (1)
  - BONE PAIN [None]
